FAERS Safety Report 13256189 (Version 1)
Quarter: 2017Q1

REPORT INFORMATION
  Report Type: Report from Study
  Country: US (occurrence: US)
  Receive Date: 20170221
  Receipt Date: 20170221
  Transmission Date: 20170428
  Serious: No
  Sender: FDA-Public Use
  Company Number: PHEH2015US004441

PATIENT
  Sex: Female
  Weight: 92.97 kg

DRUGS (1)
  1. GILENYA [Suspect]
     Active Substance: FINGOLIMOD HYDROCHLORIDE
     Indication: MULTIPLE SCLEROSIS
     Dosage: 0.5 MG, QD
     Route: 048
     Dates: start: 20150109

REACTIONS (4)
  - Migraine [Recovered/Resolved]
  - Headache [Recovered/Resolved]
  - Hypersomnia [Unknown]
  - Fatigue [Recovering/Resolving]
